FAERS Safety Report 21159896 (Version 1)
Quarter: 2022Q3

REPORT INFORMATION
  Report Type: Spontaneous
  Country: US (occurrence: US)
  Receive Date: 20220802
  Receipt Date: 20220802
  Transmission Date: 20221026
  Serious: No
  Sender: FDA-Public Use
  Company Number: US-BIOGEN-2021BI01044989

PATIENT
  Sex: Female

DRUGS (1)
  1. TYSABRI [Suspect]
     Active Substance: NATALIZUMAB
     Indication: Multiple sclerosis
     Route: 050
     Dates: start: 20091105, end: 20210825

REACTIONS (4)
  - Therapeutic product effect decreased [Not Recovered/Not Resolved]
  - Muscular weakness [Unknown]
  - Musculoskeletal disorder [Unknown]
  - Fall [Recovered/Resolved]
